FAERS Safety Report 10481388 (Version 6)
Quarter: 2015Q2

REPORT INFORMATION
  Report Type: Spontaneous
  Country: US (occurrence: US)
  Receive Date: 20140929
  Receipt Date: 20150501
  Transmission Date: 20150821
  Serious: Yes (Hospitalization, Other)
  Sender: FDA-Public Use
  Company Number: US-BAYER-2014-140129

PATIENT
  Age: 67 Year
  Sex: Male

DRUGS (2)
  1. NEXAVAR [Suspect]
     Active Substance: SORAFENIB
     Indication: HEPATOCELLULAR CARCINOMA
     Dosage: 600 MG DAILY
     Route: 048
     Dates: start: 2009, end: 2014
  2. NEXAVAR [Suspect]
     Active Substance: SORAFENIB
     Indication: METASTASES TO SPINE
     Dosage: UNK

REACTIONS (28)
  - Hepatic cancer [None]
  - Bile output increased [None]
  - Vomiting [Recovered/Resolved]
  - Skin lesion [None]
  - Withdrawal syndrome [None]
  - Dehydration [None]
  - Oedema peripheral [None]
  - Flatulence [Recovering/Resolving]
  - Chromaturia [Recovered/Resolved]
  - Multi-organ failure [None]
  - Muscle rigidity [None]
  - Diarrhoea [Recovered/Resolved]
  - Abasia [Recovered/Resolved]
  - Weight increased [Recovered/Resolved]
  - Eructation [None]
  - Nausea [Recovered/Resolved]
  - Abdominal pain [None]
  - Faeces discoloured [Recovered/Resolved]
  - Ascites [Recovered/Resolved]
  - Sepsis [None]
  - Contusion [None]
  - Intra-abdominal haemorrhage [None]
  - Hepatic failure [None]
  - Medication error [None]
  - Abdominal distension [Recovered/Resolved]
  - Haematoma [Recovered/Resolved]
  - Pain [None]
  - Gastrointestinal sounds abnormal [None]
